FAERS Safety Report 4402786-9 (Version None)
Quarter: 2004Q3

REPORT INFORMATION
  Report Type: 
  Country: None (occurrence: None)
  Receive Date: 20040721
  Receipt Date: 20030825
  Transmission Date: 20050211
  Serious: No
  Sender: FDA-Public Use
  Company Number: US-BRISTOL-MYERS SQUIBB COMPANY-12364618

PATIENT
  Age: 62 Year
  Sex: Male
  Weight: 68 kg

DRUGS (4)
  1. ZERIT [Suspect]
     Indication: HIV INFECTION
  2. EPIVIR [Concomitant]
  3. BACTRIM [Concomitant]
  4. COLESTID [Concomitant]

REACTIONS (1)
  - THROMBOCYTOPENIA [None]
